FAERS Safety Report 25045405 (Version 1)
Quarter: 2025Q1

REPORT INFORMATION
  Report Type: Spontaneous
  Country: PL (occurrence: PL)
  Receive Date: 20250306
  Receipt Date: 20250306
  Transmission Date: 20250409
  Serious: Yes (Other)
  Sender: SANOFI AVENTIS
  Company Number: PL-DialogSolutions-SAAVPROD-PI744612-C1

PATIENT
  Age: 64 Year
  Sex: Male

DRUGS (1)
  1. GLIMEPIRIDE [Suspect]
     Active Substance: GLIMEPIRIDE
     Indication: Type 2 diabetes mellitus
     Dosage: UNK, 2 BID

REACTIONS (6)
  - Hypoglycaemic encephalopathy [Unknown]
  - Loss of consciousness [Unknown]
  - Gaze palsy [Unknown]
  - Quadriparesis [Unknown]
  - Hypoglycaemia [Unknown]
  - Toxicity to various agents [Unknown]
